FAERS Safety Report 5944706-1 (Version None)
Quarter: 2008Q4

REPORT INFORMATION
  Report Type: 
  Country: None (occurrence: None)
  Receive Date: 20081107
  Receipt Date: 20081104
  Transmission Date: 20090506
  Serious: Yes (Other)
  Sender: FDA-Public Use
  Company Number: US-BAYER-200811546BCC

PATIENT
  Age: 61 Year
  Sex: Female
  Weight: 70 kg

DRUGS (3)
  1. ALEVE (CAPLET) [Suspect]
     Indication: ARTHRALGIA
     Route: 048
     Dates: start: 20050101, end: 20080401
  2. ASPIRIN [Concomitant]
  3. ZETIA [Concomitant]

REACTIONS (2)
  - GRANULOMA ANNULARE [None]
  - RASH [None]
